FAERS Safety Report 10174829 (Version 1)
Quarter: 2014Q2

REPORT INFORMATION
  Report Type: Spontaneous
  Country: US (occurrence: None)
  Receive Date: 20140414
  Receipt Date: 20140414
  Transmission Date: 20141212
  Serious: Yes (Hospitalization)
  Sender: FDA-Public Use
  Company Number: 163-POMAL-14014681

PATIENT
  Age: 64 Year
  Sex: Male
  Weight: 73 kg

DRUGS (8)
  1. POMALYST [Suspect]
     Indication: PLASMA CELL MYELOMA
     Route: 048
     Dates: start: 20131205
  2. LIDOCAINE (LIDOCAINE) [Concomitant]
  3. XANAX (ALPRAZOLAM) [Concomitant]
  4. ZOLOFT (SERTRALINE HYDROCHLORIDE) [Concomitant]
  5. DEXAMETHASONE (DEXAMETHASONE) [Concomitant]
  6. HYDROCHLOROTHIAZIDE (HYDROCHLOROTHIAZIDE) [Concomitant]
  7. LISINOPRIIL [Concomitant]
  8. NEUPOGEN (FILGRASTIM) [Concomitant]

REACTIONS (1)
  - Pain [None]
